FAERS Safety Report 6901648-2 (Version None)
Quarter: 2010Q3

REPORT INFORMATION
  Report Type: 
  Country: None (occurrence: None)
  Receive Date: 20100803
  Receipt Date: 20080228
  Transmission Date: 20110219
  Serious: No
  Sender: FDA-Public Use
  Company Number: US-PFIZER INC-2008019933

PATIENT
  Sex: Female
  Weight: 50.8 kg

DRUGS (1)
  1. LYRICA [Suspect]
     Indication: FIBROMYALGIA
     Route: 048

REACTIONS (7)
  - ABDOMINAL DISTENSION [None]
  - DRUG DOSE OMISSION [None]
  - INSOMNIA [None]
  - NIGHT SWEATS [None]
  - SLEEP DISORDER [None]
  - SWELLING [None]
  - WEIGHT INCREASED [None]
